FAERS Safety Report 20918576 (Version 2)
Quarter: 2022Q2

REPORT INFORMATION
  Report Type: Report from Study
  Country: US (occurrence: US)
  Receive Date: 20220606
  Receipt Date: 20220615
  Transmission Date: 20220721
  Serious: Yes (Hospitalization)
  Sender: FDA-Public Use
  Company Number: US-EXELIXIS-CABO-22050499

PATIENT
  Age: 55 Year
  Sex: Female

DRUGS (3)
  1. CABOMETYX [Suspect]
     Active Substance: CABOZANTINIB S-MALATE
     Indication: Renal cancer
     Dosage: 40 MG, QD (TOOK 20 MG 2 TABLET)
     Route: 048
     Dates: start: 20220309, end: 202203
  2. CABOMETYX [Suspect]
     Active Substance: CABOZANTINIB S-MALATE
     Dosage: 40 MG, QD (TOOK 20 MG 2 TABLET)
     Route: 048
     Dates: start: 20220326
  3. CABOMETYX [Suspect]
     Active Substance: CABOZANTINIB S-MALATE
     Dosage: 40 MG, QD
     Route: 048
     Dates: end: 20220523

REACTIONS (7)
  - Osteomyelitis [Unknown]
  - Brain neoplasm [Recovering/Resolving]
  - Skin fissures [Unknown]
  - Thyroid disorder [Unknown]
  - Dry skin [Unknown]
  - Cough [Unknown]
  - Lung neoplasm [Unknown]

NARRATIVE: CASE EVENT DATE: 20220301
